FAERS Safety Report 5344384-9 (Version None)
Quarter: 2007Q2

REPORT INFORMATION
  Report Type: 
  Country: None (occurrence: None)
  Receive Date: 20070604
  Receipt Date: 20070531
  Transmission Date: 20071010
  Serious: Yes (Death)
  Sender: FDA-Public Use
  Company Number: US-ASTRAZENECA-2007UW13170

PATIENT
  Age: 830 Month
  Sex: Male
  Weight: 90.9 kg

DRUGS (1)
  1. SEROQUEL [Suspect]
     Indication: HALLUCINATION
     Route: 048
     Dates: start: 20040324

REACTIONS (2)
  - DEATH [None]
  - DIABETES MELLITUS [None]
